FAERS Safety Report 8950304 (Version 1)
Quarter: 2012Q4

REPORT INFORMATION
  Report Type: 
  Country: CO (occurrence: CO)
  Receive Date: 20121205
  Receipt Date: 20121205
  Transmission Date: 20130627
  Serious: Yes (Other)
  Sender: FDA-Public Use
  Company Number: CO-BAXTER-2012BAX015050

PATIENT
  Age: 10 Year
  Sex: Male

DRUGS (2)
  1. SEVOFLURANO [Suspect]
     Indication: ADENOTONSILLECTOMY
     Route: 055
     Dates: start: 20120817, end: 20120817
  2. SEVOFLURANO [Suspect]
     Indication: TURBINECTOMY

REACTIONS (3)
  - Drug ineffective [Recovered/Resolved]
  - Drug effect delayed [Recovered/Resolved]
  - Expired drug administered [Unknown]
